FAERS Safety Report 7805595-3 (Version None)
Quarter: 2011Q4

REPORT INFORMATION
  Report Type: 
  Country: None (occurrence: None)
  Receive Date: 20111010
  Receipt Date: 20110929
  Transmission Date: 20120403
  Serious: Yes (Other)
  Sender: FDA-Public Use
  Company Number: US-ASTRAZENECA-2011SE58929

PATIENT
  Age: 64 Year
  Sex: Female
  Weight: 72.6 kg

DRUGS (8)
  1. SEROQUEL XR [Suspect]
     Indication: BIPOLAR DISORDER
     Route: 048
  2. SYNTHROID [Concomitant]
  3. ZISTRAL [Concomitant]
     Indication: MUSCLE RELAXANT THERAPY
  4. ZOCOR [Concomitant]
     Indication: BLOOD CHOLESTEROL INCREASED
  5. SEROQUEL XR [Suspect]
     Route: 048
  6. AMBIEN [Concomitant]
     Indication: SLEEP DISORDER
  7. XANAX [Concomitant]
  8. SOMA [Concomitant]
     Indication: MUSCLE SPASMS

REACTIONS (5)
  - MALAISE [None]
  - PANIC ATTACK [None]
  - SUICIDAL IDEATION [None]
  - DRUG DOSE OMISSION [None]
  - BLOOD GLUCOSE INCREASED [None]
